FAERS Safety Report 14731373 (Version 1)
Quarter: 2018Q2

REPORT INFORMATION
  Report Type: Report from Study
  Country: BR (occurrence: BR)
  Receive Date: 20180407
  Receipt Date: 20180407
  Transmission Date: 20180711
  Serious: Yes (Other)
  Sender: FDA-Public Use
  Company Number: BR-ROCHE-2102616

PATIENT
  Sex: Female
  Weight: 65 kg

DRUGS (5)
  1. HERCEPTIN [Concomitant]
     Active Substance: TRASTUZUMAB
     Indication: BREAST CANCER
     Route: 065
     Dates: start: 20160526
  2. PERJETA [Suspect]
     Active Substance: PERTUZUMAB
     Dosage: PATIENT RECEIVED 31 CYCLES OF PERJETA THERAPY
     Route: 042
     Dates: start: 20160526, end: 20180226
  3. TAXOL [Concomitant]
     Active Substance: PACLITAXEL
     Indication: BREAST CANCER
     Route: 065
     Dates: start: 20160526, end: 20170126
  4. HERCEPTIN [Concomitant]
     Active Substance: TRASTUZUMAB
     Route: 065
     Dates: start: 20160526, end: 20180326
  5. PERJETA [Suspect]
     Active Substance: PERTUZUMAB
     Indication: BREAST CANCER
     Dosage: PATIENT RECEIVED 31 CYCLES OF PERJETA THERAPY
     Route: 042
     Dates: start: 20160526

REACTIONS (2)
  - Drug ineffective [Unknown]
  - Disease progression [Unknown]
